FAERS Safety Report 12681224 (Version 1)
Quarter: 2016Q3

REPORT INFORMATION
  Report Type: Spontaneous
  Country: CL (occurrence: CL)
  Receive Date: 20160824
  Receipt Date: 20160824
  Transmission Date: 20161109
  Serious: Yes (Hospitalization, Other)
  Sender: FDA-Public Use
  Company Number: CL-009507513-1604CHL016203

PATIENT
  Age: 31 Year
  Sex: Female
  Weight: 73 kg

DRUGS (4)
  1. IMPLANON [Suspect]
     Active Substance: ETONOGESTREL
     Indication: CONTRACEPTION
     Dosage: 1 EACH 3 YEARS
     Route: 059
     Dates: start: 20131024, end: 20160211
  2. CARBAMAZEPINE. [Concomitant]
     Active Substance: CARBAMAZEPINE
     Indication: EPILEPSY
     Dosage: 200 MG, 2-2-2
  3. VALPROIC ACID. [Concomitant]
     Active Substance: VALPROIC ACID
     Indication: EPILEPSY
     Dosage: 250 MG, 1-1-2
  4. CLONAZEPAM. [Concomitant]
     Active Substance: CLONAZEPAM
     Dosage: 0.5 MG, 0-0-1

REACTIONS (4)
  - Unintended pregnancy [Recovered/Resolved]
  - Pregnancy with implant contraceptive [Recovered/Resolved]
  - Epilepsy [Unknown]
  - Caesarean section [Unknown]

NARRATIVE: CASE EVENT DATE: 20151128
